FAERS Safety Report 9000006 (Version 2)
Quarter: 2013Q1

REPORT INFORMATION
  Report Type: Spontaneous
  Country: US (occurrence: US)
  Receive Date: 20130102
  Receipt Date: 20130107
  Transmission Date: 20140127
  Serious: Yes (Other)
  Sender: FDA-Public Use
  Company Number: US-PFIZER INC-2012333518

PATIENT
  Sex: Female

DRUGS (2)
  1. PRISTIQ [Suspect]
     Dosage: UNK
  2. PROTONIX [Suspect]
     Dosage: UNK

REACTIONS (2)
  - Cerebrovascular accident [Unknown]
  - Convulsion [Unknown]
